FAERS Safety Report 9257622 (Version 1)
Quarter: 2013Q1

REPORT INFORMATION
  Report Type: Spontaneous
  Country: US (occurrence: US)
  Receive Date: 20121212
  Receipt Date: 20121212
  Transmission Date: 20140127
  Serious: No
  Sender: FDA-Public Use
  Company Number: 1210USA005656

PATIENT
  Age: 54 Year
  Sex: Male
  Weight: 97.5 kg

DRUGS (7)
  1. VICTRELIS [Suspect]
     Route: 048
  2. PEGINTRON (PEGINTERFERON ALFA-2B) POWDER FOR INJECTION, 150 UG [Suspect]
     Route: 058
  3. RIBAVIRIN (RIBAVIRIN) TABLET, 200 MG [Suspect]
     Route: 048
  4. ZOLPIDEM TARTRATE (ZOLPIDEM TARTRATE), TABLET, 10 MG [Concomitant]
  5. FLUOXETINE (FLUOXETINE), CAPSULE, 20 MG [Concomitant]
  6. RIBAVIRIN (RIBAVIRIN) TABLET, 200 MG [Concomitant]
  7. IBUPROFEN (IBUPROFEN) CAPSULE, 200 MG [Concomitant]

REACTIONS (6)
  - Injection site reaction [None]
  - Injection site erythema [None]
  - Injection site pruritus [None]
  - Fatigue [None]
  - Rash [None]
  - Dry skin [None]
